FAERS Safety Report 7982199-3 (Version None)
Quarter: 2011Q4

REPORT INFORMATION
  Report Type: 
  Country: None (occurrence: None)
  Receive Date: 20111214
  Receipt Date: 20111214
  Transmission Date: 20120403
  Serious: Yes (Life-Threatening, Hospitalization)
  Sender: FDA-Public Use
  Company Number: None

PATIENT
  Age: 76 Year
  Sex: Male
  Weight: 106.7 kg

DRUGS (2)
  1. DALTEPARIN SODIUM [Suspect]
     Indication: ATRIAL FIBRILLATION
     Dosage: 15.000 UNITS EVERY DAY SQ
     Route: 058
     Dates: start: 20111018, end: 20111205
  2. DALTEPARIN SODIUM [Suspect]
     Indication: MITRAL VALVE INCOMPETENCE
     Dosage: 15.000 UNITS EVERY DAY SQ
     Route: 058
     Dates: start: 20111018, end: 20111205

REACTIONS (2)
  - CONVULSION [None]
  - SUBDURAL HAEMATOMA [None]
